FAERS Safety Report 8031108-X (Version None)
Quarter: 2012Q1

REPORT INFORMATION
  Report Type: 
  Country: None (occurrence: None)
  Receive Date: 20120109
  Receipt Date: 20120104
  Transmission Date: 20120608
  Serious: Yes (Hospitalization, Other)
  Sender: FDA-Public Use
  Company Number: FI-ROCHE-1027252

PATIENT
  Sex: Female
  Weight: 82 kg

DRUGS (10)
  1. LYRICA [Concomitant]
     Indication: PAIN
  2. SULFASALAZINE [Concomitant]
     Indication: RHEUMATOID ARTHRITIS
  3. TRIPTYL [Concomitant]
     Indication: PAIN
  4. ACETAMINOPHEN [Concomitant]
     Indication: PAIN
  5. METHOTREXATE [Concomitant]
     Indication: RHEUMATOID ARTHRITIS
     Route: 058
  6. OXIKLORIN [Concomitant]
     Indication: RHEUMATOID ARTHRITIS
  7. DURAGESIC-100 [Concomitant]
     Indication: PAIN
  8. PREDNISOLONE [Concomitant]
     Indication: RHEUMATOID ARTHRITIS
  9. MABTHERA [Suspect]
     Indication: RHEUMATOID ARTHRITIS
     Route: 042
     Dates: start: 20091008
  10. MABTHERA [Suspect]
     Route: 042

REACTIONS (3)
  - FALLOPIAN TUBE CANCER [None]
  - RHEUMATOID ARTHRITIS [None]
  - OPEN WOUND [None]
